FAERS Safety Report 10030067 (Version 2)
Quarter: 2014Q1

REPORT INFORMATION
  Report Type: Spontaneous
  Country: US (occurrence: US)
  Receive Date: 20140323
  Receipt Date: 20140323
  Transmission Date: 20141002
  Serious: No
  Sender: FDA-Public Use
  Company Number: US-ALLERGAN-1304542US

PATIENT
  Age: 73 Year
  Sex: Female

DRUGS (2)
  1. LATISSE 0.03% [Suspect]
     Indication: GROWTH OF EYELASHES
     Dosage: 2 GTT, UNK
     Route: 061
     Dates: start: 20130127
  2. LEVOTHYROXINE [Concomitant]
     Indication: HYPOTHYROIDISM
     Dosage: UNK, QD
     Route: 048
     Dates: start: 1993

REACTIONS (3)
  - Inappropriate schedule of drug administration [Unknown]
  - Eyelid disorder [Recovering/Resolving]
  - Application site pain [Recovered/Resolved]
